FAERS Safety Report 23204252 (Version 1)
Quarter: 2023Q4

REPORT INFORMATION
  Report Type: Spontaneous
  Country: US (occurrence: US)
  Receive Date: 20231120
  Receipt Date: 20231120
  Transmission Date: 20240109
  Serious: No
  Sender: FDA-Public Use
  Company Number: US-AMGEN-USASP2023205442

PATIENT
  Age: 79 Year
  Sex: Male

DRUGS (1)
  1. REPATHA [Suspect]
     Active Substance: EVOLOCUMAB
     Indication: Product used for unknown indication
     Dosage: UNK
     Route: 065
     Dates: start: 2023

REACTIONS (5)
  - Product preparation error [Unknown]
  - Drug dose omission by device [Unknown]
  - Hypoacusis [Unknown]
  - Device use error [Unknown]
  - Injection site pain [Unknown]

NARRATIVE: CASE EVENT DATE: 20231115
